FAERS Safety Report 11945331 (Version 14)
Quarter: 2019Q1

REPORT INFORMATION
  Report Type: Spontaneous
  Country: BR (occurrence: BR)
  Receive Date: 20160125
  Receipt Date: 20190117
  Transmission Date: 20190417
  Serious: Yes (Hospitalization, Other)
  Sender: FDA-Public Use
  Company Number: BR-PFIZER INC-2014237859

PATIENT
  Age: 59 Year
  Sex: Female
  Weight: 40 kg

DRUGS (12)
  1. FRONTAL [Suspect]
     Active Substance: ALPRAZOLAM
     Dosage: 10 MG, DAILY (2 AND A HALF TABLETS IN THE AFTERNOON AND 2 TABLETS AND A HALF IN THE MORNING)
  2. FRONTAL [Suspect]
     Active Substance: ALPRAZOLAM
     Dosage: 8 MG, DAILY (1 AND A HALF TABLET OF 2MG AT MORNING AND 2 AND A HALF TABLETS OF 2MG AT NIGHT)
  3. REMERON [Concomitant]
     Active Substance: MIRTAZAPINE
     Dosage: UNK
  4. OMEZOLON [Concomitant]
     Dosage: UNK
  5. FRONTAL [Suspect]
     Active Substance: ALPRAZOLAM
     Dosage: 6.5 MG, [3 MG IN THE MORNING AND 3.5 MG IN THE AFTERNOON
     Dates: start: 2013
  6. FRONTAL [Suspect]
     Active Substance: ALPRAZOLAM
     Indication: DEPRESSION
     Dosage: 5 MG, 3.5 MG AND 2.5 MG, AS NEEDED
     Route: 048
     Dates: start: 1998
  7. FRONTAL [Suspect]
     Active Substance: ALPRAZOLAM
     Dosage: UNK
  8. FRONTAL [Suspect]
     Active Substance: ALPRAZOLAM
     Dosage: 7 MG, DAILY (3MG IN THE MORNING AND 4MG AT NIGHT)
  9. DONAREN [Concomitant]
     Active Substance: TRAZODONE HYDROCHLORIDE
     Dosage: UNK
  10. FRONTAL [Suspect]
     Active Substance: ALPRAZOLAM
     Indication: ANXIETY
     Dosage: 3 MG, 1X/DAY
  11. FRONTAL [Suspect]
     Active Substance: ALPRAZOLAM
     Indication: AGITATION
     Dosage: 4 MG, 1X/DAY
  12. FRONTAL [Suspect]
     Active Substance: ALPRAZOLAM
     Indication: INSOMNIA
     Dosage: UNK
     Dates: start: 2003

REACTIONS (59)
  - Vomiting [Recovered/Resolved]
  - Diarrhoea [Recovered/Resolved]
  - Decreased appetite [Not Recovered/Not Resolved]
  - Abdominal pain upper [Not Recovered/Not Resolved]
  - Poor quality product administered [Recovered/Resolved]
  - Suicidal ideation [Not Recovered/Not Resolved]
  - Heart rate increased [Not Recovered/Not Resolved]
  - Burning sensation [Recovered/Resolved]
  - Weight decreased [Not Recovered/Not Resolved]
  - Scoliosis [Not Recovered/Not Resolved]
  - Bone disorder [Not Recovered/Not Resolved]
  - Chronic gastritis [Not Recovered/Not Resolved]
  - Influenza [Recovered/Resolved]
  - Crying [Not Recovered/Not Resolved]
  - Insomnia [Not Recovered/Not Resolved]
  - Flatulence [Not Recovered/Not Resolved]
  - Hypertension [Recovered/Resolved]
  - Drug effect variable [Not Recovered/Not Resolved]
  - Malaise [Unknown]
  - Visual impairment [Not Recovered/Not Resolved]
  - Body height decreased [Not Recovered/Not Resolved]
  - Feeling of despair [Not Recovered/Not Resolved]
  - Product quality issue [Unknown]
  - Suspected counterfeit product [Unknown]
  - Abdominal discomfort [Not Recovered/Not Resolved]
  - Gastrointestinal pain [Recovered/Resolved]
  - Dizziness [Not Recovered/Not Resolved]
  - Tachycardia [Recovered/Resolved]
  - Exostosis [Not Recovered/Not Resolved]
  - Pain [Not Recovered/Not Resolved]
  - Gait disturbance [Not Recovered/Not Resolved]
  - Product physical issue [Unknown]
  - Gastrointestinal oedema [Not Recovered/Not Resolved]
  - Drug dependence [Not Recovered/Not Resolved]
  - Feeling hot [Not Recovered/Not Resolved]
  - Acute sinusitis [Not Recovered/Not Resolved]
  - Hepatic pain [Not Recovered/Not Resolved]
  - Dyspepsia [Recovered/Resolved]
  - Drug ineffective [Not Recovered/Not Resolved]
  - Nausea [Recovered/Resolved]
  - Vision blurred [Not Recovered/Not Resolved]
  - Alopecia [Not Recovered/Not Resolved]
  - Feeling abnormal [Not Recovered/Not Resolved]
  - Hypophagia [Not Recovered/Not Resolved]
  - Dyspnoea [Not Recovered/Not Resolved]
  - Blindness [Not Recovered/Not Resolved]
  - Anosmia [Not Recovered/Not Resolved]
  - Ageusia [Not Recovered/Not Resolved]
  - Musculoskeletal stiffness [Not Recovered/Not Resolved]
  - Dysgeusia [Not Recovered/Not Resolved]
  - Spinal disorder [Not Recovered/Not Resolved]
  - Hepatomegaly [Not Recovered/Not Resolved]
  - Intentional product misuse [Unknown]
  - Throat irritation [Recovered/Resolved]
  - Tremor [Not Recovered/Not Resolved]
  - Retching [Recovered/Resolved]
  - Intervertebral disc protrusion [Not Recovered/Not Resolved]
  - Withdrawal syndrome [Not Recovered/Not Resolved]
  - Dry mouth [Not Recovered/Not Resolved]

NARRATIVE: CASE EVENT DATE: 2013
